FAERS Safety Report 8598628-0 (Version None)
Quarter: 2012Q3

REPORT INFORMATION
  Report Type: 
  Country: None (occurrence: None)
  Receive Date: 20120816
  Receipt Date: 20120809
  Transmission Date: 20120928
  Serious: Yes (Disabling, Other)
  Sender: FDA-Public Use
  Company Number: GB-TEVA-351589ISR

PATIENT
  Sex: Male

DRUGS (1)
  1. COPAXONE [Suspect]
     Dosage: 20 MILLIGRAM DAILY;
     Route: 058
     Dates: start: 20120620

REACTIONS (10)
  - PHARYNGEAL OEDEMA [None]
  - IMMEDIATE POST-INJECTION REACTION [None]
  - MULTIPLE SCLEROSIS RELAPSE [None]
  - HYPERSENSITIVITY [None]
  - GINGIVAL SWELLING [None]
  - LIP SWELLING [None]
  - ORAL DISCOMFORT [None]
  - GAIT DISTURBANCE [None]
  - SWELLING [None]
  - ORAL PAIN [None]
